FAERS Safety Report 6010405-3 (Version None)
Quarter: 2008Q4

REPORT INFORMATION
  Report Type: 
  Country: None (occurrence: None)
  Receive Date: 20081217
  Receipt Date: 20081217
  Transmission Date: 20090506
  Serious: Yes (Hospitalization)
  Sender: FDA-Public Use
  Company Number: None

PATIENT
  Age: 53 Year
  Sex: Female
  Weight: 79.3 kg

DRUGS (2)
  1. ALEVE [Suspect]
     Indication: PAIN
     Dosage: 440 MG EVERY 8 HOURS ORAL APPROXIMATELY 1-2 MONTHS
     Route: 048
  2. MOTRIN [Suspect]
     Indication: PAIN
     Dosage: 600 MG EVERY 8 HOURS ORAL APPROXIMATELY 1-2 MONTHS
     Route: 048

REACTIONS (6)
  - ANAEMIA [None]
  - CHRONIC GASTROINTESTINAL BLEEDING [None]
  - DYSPNOEA [None]
  - GASTRIC ULCER [None]
  - HYPOAESTHESIA [None]
  - MYALGIA [None]
